FAERS Safety Report 7280721-6 (Version None)
Quarter: 2011Q1

REPORT INFORMATION
  Report Type: 
  Country: None (occurrence: None)
  Receive Date: 20110208
  Receipt Date: 20110204
  Transmission Date: 20110831
  Serious: Yes (Other)
  Sender: FDA-Public Use
  Company Number: B0698130A

PATIENT
  Sex: Female
  Weight: 61 kg

DRUGS (9)
  1. TRASTUZUMAB [Concomitant]
     Indication: BREAST CANCER
     Dosage: 120MG PER DAY
     Route: 048
  2. GENTACIN [Concomitant]
     Route: 062
     Dates: start: 20091105, end: 20100520
  3. LOPEMIN [Concomitant]
     Indication: PROPHYLAXIS
     Route: 048
     Dates: start: 20090917, end: 20091105
  4. BETAMETHASONE [Concomitant]
     Route: 062
     Dates: start: 20091105, end: 20100715
  5. RIBOFLAVIN TAB [Concomitant]
     Route: 048
     Dates: start: 20091105, end: 20100715
  6. PYDOXAL [Concomitant]
     Indication: PROPHYLAXIS
     Route: 048
     Dates: start: 20090917, end: 20100715
  7. XELODA [Suspect]
     Dosage: 2400MG PER DAY
     Route: 048
  8. TYKERB [Suspect]
     Indication: BREAST CANCER
     Dosage: 1250MG PER DAY
     Route: 048
     Dates: start: 20090917, end: 20100715
  9. ZOMETA [Concomitant]
     Indication: BREAST CANCER
     Dosage: 4MG PER DAY
     Route: 042

REACTIONS (1)
  - SEBORRHOEIC DERMATITIS [None]
